FAERS Safety Report 7657308-6 (Version None)
Quarter: 2011Q3

REPORT INFORMATION
  Report Type: 
  Country: None (occurrence: None)
  Receive Date: 20110804
  Receipt Date: 20110725
  Transmission Date: 20111222
  Serious: Yes (Hospitalization)
  Sender: FDA-Public Use
  Company Number: PHHY2011US63644

PATIENT
  Sex: Female
  Weight: 83.447 kg

DRUGS (5)
  1. LEXAPRO [Concomitant]
  2. GABAPENTIN [Concomitant]
  3. BENZONATATE [Concomitant]
  4. GILENYA [Suspect]
     Indication: MULTIPLE SCLEROSIS
     Dosage: 0.5 MG, QD
     Route: 048
     Dates: start: 20110706
  5. VITAMIN TAB [Concomitant]

REACTIONS (5)
  - CHEST PAIN [None]
  - DYSPNOEA [None]
  - SOMNOLENCE [None]
  - PAIN IN EXTREMITY [None]
  - SINUS BRADYCARDIA [None]
